FAERS Safety Report 12603379 (Version 1)
Quarter: 2016Q3

REPORT INFORMATION
  Report Type: Spontaneous
  Country: FI (occurrence: FI)
  Receive Date: 20160728
  Receipt Date: 20160728
  Transmission Date: 20161109
  Serious: Yes (Disabling, Other)
  Sender: FDA-Public Use
  Company Number: FI-WARNER CHILCOTT, LLC-1055662

PATIENT
  Age: 84 Year
  Sex: Female

DRUGS (4)
  1. IDEOS [Suspect]
     Active Substance: CALCIUM CARBONATE\CHOLECALCIFEROL
     Route: 048
     Dates: start: 20041201, end: 20050518
  2. LIBRAX [Concomitant]
     Active Substance: CHLORDIAZEPOXIDE HYDROCHLORIDE\CLIDINIUM BROMIDE
  3. OPTINATE [Suspect]
     Active Substance: RISEDRONATE SODIUM
     Indication: OSTEOPOROSIS
     Route: 048
     Dates: start: 20041201, end: 20050518
  4. TENOX [Concomitant]
     Active Substance: TEMAZEPAM

REACTIONS (10)
  - Gastric disorder [Recovered/Resolved with Sequelae]
  - Dementia Alzheimer^s type [Not Recovered/Not Resolved]
  - Parathyroid tumour benign [Recovered/Resolved with Sequelae]
  - Syncope [None]
  - Malaise [Recovered/Resolved with Sequelae]
  - Weight decreased [Recovered/Resolved with Sequelae]
  - Memory impairment [Recovered/Resolved with Sequelae]
  - Dizziness [Not Recovered/Not Resolved]
  - Balance disorder [Recovered/Resolved with Sequelae]
  - Hyperparathyroidism [Recovered/Resolved with Sequelae]

NARRATIVE: CASE EVENT DATE: 200505
